FAERS Safety Report 10751603 (Version 4)
Quarter: 2015Q2

REPORT INFORMATION
  Report Type: Spontaneous
  Country: TR (occurrence: TR)
  Receive Date: 20150130
  Receipt Date: 20150518
  Transmission Date: 20150821
  Serious: Yes (Other)
  Sender: FDA-Public Use
  Company Number: TR-PFIZER INC-2015036175

PATIENT
  Age: 31 Year
  Sex: Male
  Weight: 83 kg

DRUGS (1)
  1. NEURONTIN [Suspect]
     Active Substance: GABAPENTIN
     Indication: NEURALGIA
     Dosage: 600 MG, 3X/DAY
     Dates: start: 2004, end: 2012

REACTIONS (6)
  - Euphoric mood [Unknown]
  - Abnormal behaviour [Not Recovered/Not Resolved]
  - Dizziness [Not Recovered/Not Resolved]
  - Illusion [Not Recovered/Not Resolved]
  - Parkinson^s disease [Not Recovered/Not Resolved]
  - Abnormal behaviour [Not Recovered/Not Resolved]

NARRATIVE: CASE EVENT DATE: 2004
